FAERS Safety Report 13806219 (Version 5)
Quarter: 2020Q3

REPORT INFORMATION
  Report Type: Spontaneous
  Country: US (occurrence: US)
  Receive Date: 20170728
  Receipt Date: 20200812
  Transmission Date: 20201102
  Serious: Yes (Death, Hospitalization, Other)
  Sender: FDA-Public Use
  Company Number: US-JNJFOC-20170720551

PATIENT
  Age: 64 Year
  Sex: Female
  Weight: 73.09 kg

DRUGS (3)
  1. XARELTO [Suspect]
     Active Substance: RIVAROXABAN
     Indication: DEEP VEIN THROMBOSIS
     Route: 048
     Dates: start: 20150517, end: 20150531
  2. XARELTO [Suspect]
     Active Substance: RIVAROXABAN
     Indication: PULMONARY EMBOLISM
     Route: 048
     Dates: start: 20150601, end: 20150825
  3. ACETYLSALICYLIC ACID [Suspect]
     Active Substance: ASPIRIN
     Route: 048

REACTIONS (3)
  - Pericardial effusion [Unknown]
  - Conjunctival haemorrhage [Unknown]
  - Embolic stroke [Recovering/Resolving]

NARRATIVE: CASE EVENT DATE: 20150624
